FAERS Safety Report 6423181-7 (Version None)
Quarter: 2009Q4

REPORT INFORMATION
  Report Type: 
  Country: None (occurrence: None)
  Receive Date: 20091102
  Receipt Date: 20091002
  Transmission Date: 20100525
  Serious: No
  Sender: FDA-Public Use
  Company Number: US-BAYER-200935169NA

PATIENT
  Age: 34 Year
  Sex: Female
  Weight: 57 kg

DRUGS (1)
  1. MIRENA [Suspect]
     Indication: CONTRACEPTION
     Route: 015
     Dates: start: 20061101

REACTIONS (6)
  - ABDOMINAL DISTENSION [None]
  - AMENORRHOEA [None]
  - DIZZINESS [None]
  - HEADACHE [None]
  - PALPITATIONS [None]
  - WEIGHT DECREASED [None]
